FAERS Safety Report 12679578 (Version 1)
Quarter: 2016Q3

REPORT INFORMATION
  Report Type: Spontaneous
  Country: US (occurrence: US)
  Receive Date: 20160824
  Receipt Date: 20160824
  Transmission Date: 20161109
  Serious: No
  Sender: FDA-Public Use
  Company Number: US-PFIZER INC-2016391661

PATIENT
  Age: 67 Year
  Sex: Female
  Weight: 58 kg

DRUGS (2)
  1. PREDNISONE. [Interacting]
     Active Substance: PREDNISONE
     Indication: ASTHMA
     Dosage: 20 MG, 1X/DAY
     Route: 048
     Dates: start: 201506, end: 201508
  2. ALPRAZOLAM. [Suspect]
     Active Substance: ALPRAZOLAM
     Indication: INSOMNIA
     Dosage: 1 MG, UNK

REACTIONS (2)
  - Drug ineffective [Unknown]
  - Drug interaction [Unknown]
